FAERS Safety Report 6263133-3 (Version None)
Quarter: 2009Q3

REPORT INFORMATION
  Report Type: 
  Country: None (occurrence: None)
  Receive Date: 20090708
  Receipt Date: 20090708
  Transmission Date: 20100115
  Serious: Yes (Life-Threatening, Other)
  Sender: FDA-Public Use
  Company Number: None

PATIENT
  Sex: Female
  Weight: 63.5036 kg

DRUGS (1)
  1. NITRODERM [Suspect]
     Indication: DRUG THERAPY CHANGED
     Dosage: 1 EVERY DAY DIFFERENT SPOT
     Dates: start: 20090302, end: 20090624

REACTIONS (2)
  - APPLICATION SITE WARMTH [None]
  - MIGRAINE [None]
